FAERS Safety Report 8215714-5 (Version None)
Quarter: 2012Q1

REPORT INFORMATION
  Report Type: 
  Country: None (occurrence: None)
  Receive Date: 20120316
  Receipt Date: 20120301
  Transmission Date: 20120608
  Serious: Yes (Other)
  Sender: FDA-Public Use
  Company Number: CHPA2012US004378

PATIENT
  Sex: Male

DRUGS (3)
  1. EXCEDRIN (MIGRAINE) [Suspect]
     Indication: MIGRAINE
     Dosage: 1-2 DF, QD
     Route: 048
     Dates: end: 20120220
  2. EXCEDRIN EXTRA STRENGTH TABLETS [Suspect]
     Indication: MIGRAINE
     Dosage: 1-2 DF, QD
     Route: 048
     Dates: end: 20120220
  3. WELLBUTRIN [Concomitant]
     Dosage: UNK

REACTIONS (3)
  - HEADACHE [None]
  - UNDERDOSE [None]
  - ROAD TRAFFIC ACCIDENT [None]
